FAERS Safety Report 25139501 (Version 1)
Quarter: 2025Q1

REPORT INFORMATION
  Report Type: Report from Study
  Country: US (occurrence: US)
  Receive Date: 20250331
  Receipt Date: 20250331
  Transmission Date: 20250409
  Serious: Yes (Death, Other)
  Sender: ACADIA PHARMACEUTICALS
  Company Number: US-ACADIA PHARMACEUTICALS INC.-ACA-2025-PIM-003505

PATIENT
  Sex: Female

DRUGS (12)
  1. NUPLAZID [Suspect]
     Active Substance: PIMAVANSERIN TARTRATE
     Indication: Parkinson^s disease
     Dosage: 2 DOSAGE FORM (20 MILLIGRAM) QD
     Route: 048
  2. DROXIDOPA [Concomitant]
     Active Substance: DROXIDOPA
  3. NOURIANZ [Concomitant]
     Active Substance: ISTRADEFYLLINE
  4. MYRBETRIQ [Concomitant]
     Active Substance: MIRABEGRON
  5. ASPIRIN [Concomitant]
     Active Substance: ASPIRIN
  6. METOPROLOL [Concomitant]
     Active Substance: METOPROLOL
  7. VITAMIN D3 [Concomitant]
     Active Substance: CHOLECALCIFEROL
  8. PROBIOTICS NOS [Concomitant]
     Active Substance: PROBIOTICS NOS
  9. VITAMIN B12 [Concomitant]
     Active Substance: CYANOCOBALAMIN
  10. CARBIDOPA AND LEVODOPA [Concomitant]
     Active Substance: CARBIDOPA\LEVODOPA
  11. MIDODRINE [Concomitant]
     Active Substance: MIDODRINE
  12. SINEMET [Concomitant]
     Active Substance: CARBIDOPA\LEVODOPA

REACTIONS (1)
  - Death [Fatal]
